FAERS Safety Report 7730735-4 (Version None)
Quarter: 2011Q3

REPORT INFORMATION
  Report Type: 
  Country: None (occurrence: None)
  Receive Date: 20110906
  Receipt Date: 20110811
  Transmission Date: 20111222
  Serious: Yes (Other)
  Sender: FDA-Public Use
  Company Number: GB-GLAXOSMITHKLINE-B0739053A

PATIENT
  Age: 26 Year
  Sex: Female

DRUGS (1)
  1. FLIXONASE [Suspect]
     Indication: PRODUCT USED FOR UNKNOWN INDICATION
     Route: 045

REACTIONS (3)
  - GLAUCOMA [None]
  - ABNORMAL SENSATION IN EYE [None]
  - VISUAL ACUITY REDUCED [None]
